FAERS Safety Report 8145338-X (Version None)
Quarter: 2012Q1

REPORT INFORMATION
  Report Type: 
  Country: None (occurrence: None)
  Receive Date: 20120217
  Receipt Date: 20120210
  Transmission Date: 20120608
  Serious: Yes (Hospitalization)
  Sender: FDA-Public Use
  Company Number: US-US-EMD SERONO, INC.-7112636

PATIENT
  Sex: Female

DRUGS (2)
  1. REBIF [Suspect]
     Indication: MULTIPLE SCLEROSIS
     Route: 058
     Dates: start: 20110927
  2. METHADONE HCL [Concomitant]
     Indication: BACK PAIN

REACTIONS (5)
  - URINARY TRACT INFECTION [None]
  - BLOOD GLUCOSE DECREASED [None]
  - INJECTION SITE HAEMATOMA [None]
  - BLOOD MAGNESIUM DECREASED [None]
  - INJECTION SITE ERYTHEMA [None]
